FAERS Safety Report 5982956-9 (Version None)
Quarter: 2008Q4

REPORT INFORMATION
  Report Type: 
  Country: None (occurrence: None)
  Receive Date: 20081125
  Receipt Date: 20080818
  Transmission Date: 20090506
  Serious: Yes (Hospitalization)
  Sender: FDA-Public Use
  Company Number: 2008MP000128

PATIENT
  Age: 82 Year
  Sex: Male
  Weight: 97.5234 kg

DRUGS (1)
  1. GLIADEL [Suspect]
     Indication: BRAIN NEOPLASM
     Dosage: 61.6 MG;X1;ICER
     Dates: start: 20080814

REACTIONS (2)
  - AGITATION [None]
  - CONFUSIONAL STATE [None]
